FAERS Safety Report 5800137-6 (Version None)
Quarter: 2008Q2

REPORT INFORMATION
  Report Type: 
  Country: None (occurrence: None)
  Receive Date: 20080626
  Receipt Date: 20071127
  Transmission Date: 20081010
  Serious: Yes (Hospitalization)
  Sender: FDA-Public Use
  Company Number: APP200700337

PATIENT
  Age: 76 Year
  Sex: Female
  Weight: 68.0396 kg

DRUGS (4)
  1. SENSORCAINE-MPF SPINAL (BUPIVACAINE HYDROCHLORIDE) [Suspect]
     Indication: SPINAL ANAESTHESIA
     Dosage: , ONCE
     Dates: start: 20071119, end: 20071119
  2. SENSORCAINE-MPF SPINAL (BUPIVACAINE HYDROCHLORIDE) [Suspect]
     Indication: VERTEBROPLASTY
     Dosage: , ONCE
     Dates: start: 20071119, end: 20071119
  3. PERCOCET [Concomitant]
  4. VICODIN [Concomitant]

REACTIONS (2)
  - MUSCULAR WEAKNESS [None]
  - PARAESTHESIA [None]
